FAERS Safety Report 17334721 (Version 2)
Quarter: 2020Q1

REPORT INFORMATION
  Report Type: Spontaneous
  Country: US (occurrence: US)
  Receive Date: 20200128
  Receipt Date: 20200323
  Transmission Date: 20200409
  Serious: Yes (Other)
  Sender: FDA-Public Use
  Company Number: US-JNJFOC-20200128620

PATIENT
  Sex: Male

DRUGS (6)
  1. VITAMIN D 2000 [Concomitant]
     Active Substance: VITAMIN D NOS
     Dates: start: 20190801
  2. ZYTIGA [Suspect]
     Active Substance: ABIRATERONE ACETATE
     Route: 048
     Dates: start: 20200124
  3. ASPIRIN                            /00002701/ [Concomitant]
     Active Substance: ASPIRIN
     Dates: start: 1990
  4. CALCIUM CITRATE W/COLECALCIFEROL [Concomitant]
     Dates: start: 20190801
  5. ZYTIGA [Suspect]
     Active Substance: ABIRATERONE ACETATE
     Indication: PRODUCT USED FOR UNKNOWN INDICATION
     Route: 048
     Dates: start: 20191022, end: 20191224
  6. PREDNISONE. [Concomitant]
     Active Substance: PREDNISONE
     Dates: start: 20191010

REACTIONS (1)
  - Liver injury [Unknown]
